FAERS Safety Report 13839991 (Version 2)
Quarter: 2019Q4

REPORT INFORMATION
  Report Type: Spontaneous
  Country: GB (occurrence: GB)
  Receive Date: 20170807
  Receipt Date: 20191224
  Transmission Date: 20200122
  Serious: Yes (Life-Threatening)
  Sender: FDA-Public Use
  Company Number: GB-TEVA-792137ACC

PATIENT
  Sex: Female
  Weight: 81.6 kg

DRUGS (2)
  1. IMPLANON [Suspect]
     Active Substance: ETONOGESTREL
     Indication: CONTRACEPTION
  2. ACETAZOLAMIDE. [Suspect]
     Active Substance: ACETAZOLAMIDE
     Indication: IDIOPATHIC INTRACRANIAL HYPERTENSION
     Dosage: 500 MILLIGRAM DAILY;
     Route: 048
     Dates: start: 20170309

REACTIONS (6)
  - Abortion spontaneous [Recovered/Resolved]
  - Vaginal haemorrhage [Unknown]
  - Drug interaction [Unknown]
  - Idiopathic intracranial hypertension [Unknown]
  - Pregnancy with implant contraceptive [Recovered/Resolved]
  - Maternal exposure during pregnancy [Unknown]

NARRATIVE: CASE EVENT DATE: 20170412
